FAERS Safety Report 8831506 (Version 1)
Quarter: 2012Q4

REPORT INFORMATION
  Report Type: 
  Country: US (occurrence: US)
  Receive Date: 20121009
  Receipt Date: 20121009
  Transmission Date: 20130627
  Serious: Yes (Other)
  Sender: FDA-Public Use
  Company Number: US-ROCHE-1115931

PATIENT
  Age: 22 Year
  Sex: Female
  Weight: 55.39 kg

DRUGS (1)
  1. ROCEPHIN [Suspect]
     Indication: LYME DISEASE
     Route: 042

REACTIONS (5)
  - Chest discomfort [Recovered/Resolved]
  - Drug administration error [Unknown]
  - Product deposit [Recovered/Resolved]
  - Product quality issue [Unknown]
  - Chest pain [Recovered/Resolved]
